FAERS Safety Report 15814857 (Version 2)
Quarter: 2019Q1

REPORT INFORMATION
  Report Type: Report from Study
  Country: ES (occurrence: ES)
  Receive Date: 20190111
  Receipt Date: 20190215
  Transmission Date: 20190417
  Serious: Yes (Life-Threatening, Hospitalization, Other)
  Sender: FDA-Public Use
  Company Number: ES-ACCORD-101577

PATIENT
  Age: 77 Year
  Sex: Male

DRUGS (6)
  1. ENALAPRIL/ HYDROCHLOROTHIAZIDE PENSA [Interacting]
     Active Substance: ENALAPRIL\HYDROCHLOROTHIAZIDE
     Indication: HYPERTENSION
     Route: 048
     Dates: start: 20120912, end: 20160923
  2. SERTRALINE [Suspect]
     Active Substance: SERTRALINE HYDROCHLORIDE
     Indication: PRODUCT USED FOR UNKNOWN INDICATION
     Route: 048
     Dates: start: 20160912, end: 20161003
  3. BELOKEN [Concomitant]
     Active Substance: METOPROLOL TARTRATE
     Route: 048
     Dates: end: 20160923
  4. NOCTAMID [Concomitant]
     Active Substance: LORMETAZEPAM
     Route: 048
     Dates: start: 20130911
  5. CLOPIDOGREL [Concomitant]
     Active Substance: CLOPIDOGREL BISULFATE
     Route: 048
     Dates: start: 20100902
  6. SIMVASTATIN. [Concomitant]
     Active Substance: SIMVASTATIN
     Route: 048
     Dates: end: 20160923

REACTIONS (2)
  - Hyponatraemia [Recovered/Resolved]
  - Drug interaction [Unknown]

NARRATIVE: CASE EVENT DATE: 20160922
